FAERS Safety Report 16122725 (Version 2)
Quarter: 2019Q1

REPORT INFORMATION
  Report Type: Spontaneous
  Country: US (occurrence: US)
  Receive Date: 20190327
  Receipt Date: 20190327
  Transmission Date: 20190418
  Serious: Yes (Hospitalization)
  Sender: FDA-Public Use
  Company Number: US-ALLERGAN-1912536US

PATIENT
  Sex: Male

DRUGS (3)
  1. DULOXETINE. [Concomitant]
     Active Substance: DULOXETINE
     Dosage: 60 UNK
  2. VRAYLAR [Suspect]
     Active Substance: CARIPRAZINE
     Indication: MANIA
  3. VRAYLAR [Suspect]
     Active Substance: CARIPRAZINE
     Indication: BIPOLAR DISORDER
     Dosage: 1.5 MG
     Dates: start: 2018, end: 201903

REACTIONS (2)
  - Suicide attempt [Recovered/Resolved]
  - Depression [Unknown]
